FAERS Safety Report 6048709-0 (Version None)
Quarter: 2009Q1

REPORT INFORMATION
  Report Type: 
  Country: None (occurrence: None)
  Receive Date: 20090123
  Receipt Date: 20090112
  Transmission Date: 20090719
  Serious: Yes (Other)
  Sender: FDA-Public Use
  Company Number: AU-ROCHE-607515

PATIENT
  Sex: Male

DRUGS (2)
  1. ROACCUTANE [Suspect]
     Dosage: PATIENT STARTED ISOTRETENOIN 8 MONTHS AGO INTERMITENTLY.
     Route: 065
     Dates: start: 20080101
  2. ROACCUTANE [Suspect]
     Route: 065

REACTIONS (5)
  - DRY SKIN [None]
  - INTRACRANIAL HYPOTENSION [None]
  - LIP DRY [None]
  - MENIERE'S DISEASE [None]
  - VISUAL IMPAIRMENT [None]
